FAERS Safety Report 21228972 (Version 2)
Quarter: 2022Q3

REPORT INFORMATION
  Report Type: Other
  Country: US (occurrence: None)
  Receive Date: 20220818
  Receipt Date: 20220821
  Transmission Date: 20221026
  Serious: No
  Sender: FDA-Public Use
  Company Number: US-ROCHE-2998475

PATIENT
  Age: 37 Year
  Sex: Female
  Weight: 68.100 kg

DRUGS (4)
  1. OCREVUS [Suspect]
     Active Substance: OCRELIZUMAB
     Indication: Relapsing-remitting multiple sclerosis
     Dosage: THEN 600 MG EVERY 6 MONTHS, DATE OF TREATMENT: 08/JAN/2021, 22/JAN/2021, 09/JUL/2021, 15/JUL/2022, 1
     Route: 042
     Dates: start: 202001
  2. OCREVUS [Suspect]
     Active Substance: OCRELIZUMAB
     Route: 065
     Dates: start: 20210709
  3. ZONISAMIDE [Concomitant]
     Active Substance: ZONISAMIDE
     Indication: Migraine
     Route: 048
  4. ZYRTEC [Concomitant]
     Active Substance: CETIRIZINE HYDROCHLORIDE
     Route: 048

REACTIONS (2)
  - COVID-19 [Unknown]
  - Gastroenteritis viral [Recovered/Resolved]

NARRATIVE: CASE EVENT DATE: 20220801
